FAERS Safety Report 19221469 (Version 1)
Quarter: 2021Q2

REPORT INFORMATION
  Report Type: Other
  Country: IS (occurrence: IS)
  Receive Date: 20210505
  Receipt Date: 20210505
  Transmission Date: 20210717
  Serious: Yes (Life-Threatening, Hospitalization)
  Sender: FDA-Public Use
  Company Number: IS-NOSTRUM LABORATORIES, INC.-2110241

PATIENT
  Age: 67 Year
  Sex: Female

DRUGS (2)
  1. OXYCODONE AND ACETAMINOPHEN [Suspect]
     Active Substance: ACETAMINOPHEN\OXYCODONE HYDROCHLORIDE
     Indication: PAIN
     Route: 048
  2. VORICONAZOLE. [Interacting]
     Active Substance: VORICONAZOLE
     Route: 042

REACTIONS (4)
  - Respiratory depression [Recovered/Resolved]
  - Labelled drug-drug interaction medication error [Recovered/Resolved]
  - Coma [Recovered/Resolved]
  - Hypotension [Recovered/Resolved]
